FAERS Safety Report 14004460 (Version 1)
Quarter: 2017Q3

REPORT INFORMATION
  Report Type: Spontaneous
  Country: SE (occurrence: SE)
  Receive Date: 20170922
  Receipt Date: 20170922
  Transmission Date: 20171128
  Serious: Yes (Other)
  Sender: FDA-Public Use
  Company Number: PHHY2017SE136592

PATIENT
  Age: 70 Year
  Sex: Female

DRUGS (1)
  1. ANASTROZOLE SANDOZ [Suspect]
     Active Substance: ANASTROZOLE
     Indication: BREAST CANCER
     Dosage: UNK
     Route: 065
     Dates: end: 20170703

REACTIONS (1)
  - Vitreous detachment [Unknown]

NARRATIVE: CASE EVENT DATE: 20170513
